FAERS Safety Report 12631585 (Version 2)
Quarter: 2016Q3

REPORT INFORMATION
  Report Type: Spontaneous
  Country: US (occurrence: US)
  Receive Date: 20160808
  Receipt Date: 20160808
  Transmission Date: 20161109
  Serious: No
  Sender: FDA-Public Use
  Company Number: US-BEH-2015054782

PATIENT
  Sex: Female
  Weight: 77 kg

DRUGS (17)
  1. OXYCODONE [Concomitant]
     Active Substance: OXYCODONE
  2. PREDNISONE. [Concomitant]
     Active Substance: PREDNISONE
  3. HIZENTRA [Suspect]
     Active Substance: HUMAN IMMUNOGLOBULIN G
     Indication: HYPOGAMMAGLOBULINAEMIA
     Route: 058
  4. COQ [Concomitant]
  5. EPIPEN [Concomitant]
     Active Substance: EPINEPHRINE
     Indication: ANAPHYLACTIC REACTION
  6. HIZENTRA [Suspect]
     Active Substance: HUMAN IMMUNOGLOBULIN G
     Indication: HYPOGAMMAGLOBULINAEMIA
     Route: 058
  7. OMEPRAZOLE. [Concomitant]
     Active Substance: OMEPRAZOLE
  8. RANITIDINE. [Concomitant]
     Active Substance: RANITIDINE
  9. ZOLPIDEM [Concomitant]
     Active Substance: ZOLPIDEM\ZOLPIDEM TARTRATE
  10. ACETAMINOPHEN. [Concomitant]
     Active Substance: ACETAMINOPHEN
  11. CRESTOR [Concomitant]
     Active Substance: ROSUVASTATIN CALCIUM
  12. MULTIVITAMIN [Concomitant]
     Active Substance: VITAMINS
  13. CALCIUM [Concomitant]
     Active Substance: CALCIUM
  14. NIACINAMIDE [Concomitant]
     Active Substance: NIACINAMIDE
  15. METOPROLOL. [Concomitant]
     Active Substance: METOPROLOL
  16. DIPHENHYDRAMINE. [Concomitant]
     Active Substance: DIPHENHYDRAMINE
  17. LEVOTHYROXINE. [Concomitant]
     Active Substance: LEVOTHYROXINE

REACTIONS (4)
  - Nausea [Unknown]
  - Headache [Unknown]
  - Vomiting [Unknown]
  - Hypertension [Unknown]
